FAERS Safety Report 4399591-9 (Version None)
Quarter: 2004Q3

REPORT INFORMATION
  Report Type: 
  Country: None (occurrence: None)
  Receive Date: 20040712
  Receipt Date: 20040623
  Transmission Date: 20050211
  Serious: Yes (Hospitalization)
  Sender: FDA-Public Use
  Company Number: A04200400547

PATIENT
  Age: 73 Year
  Sex: Female

DRUGS (4)
  1. ELOXATIN [Suspect]
     Indication: COLON CANCER
     Dosage: 50.685 MG/M2 OTHER A FEW HOURS
     Route: 041
     Dates: start: 20040526, end: 20040526
  2. ELOXATIN [Suspect]
     Indication: METASTASES TO BONE
     Dosage: 50.685 MG/M2 OTHER A FEW HOURS
     Route: 041
     Dates: start: 20040526, end: 20040526
  3. ELOXATIN [Suspect]
     Indication: METASTASES TO LIVER
     Dosage: 50.685 MG/M2 OTHER A FEW HOURS
     Route: 041
     Dates: start: 20040526, end: 20040526
  4. MORPHINE [Concomitant]

REACTIONS (8)
  - BLOOD CALCIUM DECREASED [None]
  - BLOOD ELECTROLYTES ABNORMAL [None]
  - BLOOD POTASSIUM DECREASED [None]
  - DYSAESTHESIA [None]
  - MYOCLONUS [None]
  - PARAESTHESIA [None]
  - SUICIDAL IDEATION [None]
  - VOMITING [None]
